FAERS Safety Report 5622164-4 (Version None)
Quarter: 2008Q1

REPORT INFORMATION
  Report Type: 
  Country: None (occurrence: None)
  Receive Date: 20080211
  Receipt Date: 20080129
  Transmission Date: 20080703
  Serious: Yes (Other)
  Sender: FDA-Public Use
  Company Number: US-RANBAXY-2007US-06222

PATIENT

DRUGS (3)
  1. LORAZEPAM [Suspect]
     Indication: ANXIETY
     Dosage: .05 MG, PRN
     Route: 048
  2. LORAZEPAM [Suspect]
     Indication: PANIC ATTACK
  3. XALITIN EYE DROPS [Concomitant]
     Indication: GLAUCOMA
     Dosage: UNK
     Route: 047

REACTIONS (5)
  - DRY MOUTH [None]
  - DRY SKIN [None]
  - GAIT DISTURBANCE [None]
  - HERPES ZOSTER [None]
  - HUMERUS FRACTURE [None]
